FAERS Safety Report 17042152 (Version 1)
Quarter: 2019Q4

REPORT INFORMATION
  Report Type: Spontaneous
  Country: US (occurrence: US)
  Receive Date: 20191112
  Receipt Date: 20191112
  Transmission Date: 20200122
  Serious: Yes (Other)
  Sender: FDA-Public Use
  Company Number: None

PATIENT
  Age: 51 Year
  Sex: Male
  Weight: 79.83 kg

DRUGS (1)
  1. HARD TIMES FOR MEN EXTREME MALE ENHENCE [Suspect]
     Active Substance: DIETARY SUPPLEMENT
     Dosage: ONE PILL ONCE ORAL

REACTIONS (1)
  - Adverse event [None]

NARRATIVE: CASE EVENT DATE: 20191025
